FAERS Safety Report 10758701 (Version 1)
Quarter: 2015Q1

REPORT INFORMATION
  Report Type: Spontaneous
  Country: US (occurrence: None)
  Receive Date: 20150202
  Receipt Date: 20150202
  Transmission Date: 20150721
  Serious: No
  Sender: FDA-Public Use
  Company Number: None

PATIENT
  Age: 43 Year
  Sex: Female
  Weight: 180 kg

DRUGS (1)
  1. RIFAMPICIN [Suspect]
     Active Substance: RIFAMPIN
     Indication: HIDRADENITIS
     Dosage: 150MG - 1 PILL
     Route: 048
     Dates: start: 20150128, end: 20150131

REACTIONS (8)
  - Visual impairment [None]
  - Paraesthesia [None]
  - Palpitations [None]
  - Headache [None]
  - Fear [None]
  - Pain in extremity [None]
  - Dyspnoea [None]
  - Chest pain [None]

NARRATIVE: CASE EVENT DATE: 20150131
